FAERS Safety Report 9437549 (Version 2)
Quarter: 2013Q3

REPORT INFORMATION
  Report Type: Spontaneous
  Country: US (occurrence: US)
  Receive Date: 20130802
  Receipt Date: 20130912
  Transmission Date: 20140515
  Serious: Yes (Hospitalization)
  Sender: FDA-Public Use
  Company Number: US-MYLANLABS-2013S1016934

PATIENT
  Sex: Male

DRUGS (1)
  1. LEVETIRACETAM TABLETS [Suspect]

REACTIONS (1)
  - Convulsion [Not Recovered/Not Resolved]
